FAERS Safety Report 18760195 (Version 2)
Quarter: 2021Q1

REPORT INFORMATION
  Report Type: Spontaneous
  Country: US (occurrence: US)
  Receive Date: 20210119
  Receipt Date: 20210218
  Transmission Date: 20210419
  Serious: No
  Sender: FDA-Public Use
  Company Number: US-BAUSCH-BL-2020-039200

PATIENT
  Sex: Female

DRUGS (3)
  1. LUMIFY [Suspect]
     Active Substance: BRIMONIDINE TARTRATE
     Dosage: STOPPED IMMEDIATELY AFTER THE INITIAL USE
     Route: 047
     Dates: start: 20201226, end: 20201226
  2. LUMIFY [Suspect]
     Active Substance: BRIMONIDINE TARTRATE
     Dosage: RE?STARTED WITH A NEW BOTTLE
     Route: 047
     Dates: start: 202012
  3. LUMIFY [Suspect]
     Active Substance: BRIMONIDINE TARTRATE
     Indication: OCULAR HYPERAEMIA
     Dosage: HAD BEEN TAKING FOR A LONG TIME (UNKNOWN START DATE)
     Route: 047
     Dates: end: 202012

REACTIONS (4)
  - Product colour issue [Unknown]
  - Product quality issue [Unknown]
  - Eye irritation [Recovered/Resolved]
  - Ocular hyperaemia [Recovered/Resolved]

NARRATIVE: CASE EVENT DATE: 20201226
